FAERS Safety Report 7808980-9 (Version None)
Quarter: 2011Q4

REPORT INFORMATION
  Report Type: 
  Country: None (occurrence: None)
  Receive Date: 20111012
  Receipt Date: 20111005
  Transmission Date: 20120403
  Serious: Yes (Death)
  Sender: FDA-Public Use
  Company Number: US-SANOFI-AVENTIS-2011SA065680

PATIENT
  Age: 58 Year
  Sex: Male

DRUGS (7)
  1. ATORVASTATIN [Concomitant]
     Dates: end: 20111003
  2. TRICOR [Concomitant]
     Dates: end: 20111003
  3. ASPIRIN [Suspect]
     Route: 065
     Dates: end: 20111003
  4. MULTAQ [Suspect]
     Route: 048
     Dates: end: 20111003
  5. COUMADIN [Suspect]
     Route: 065
     Dates: end: 20111003
  6. FISH OIL [Concomitant]
     Dates: end: 20111003
  7. PLAVIX [Suspect]
     Route: 048
     Dates: end: 20111003

REACTIONS (3)
  - INTERNATIONAL NORMALISED RATIO ABNORMAL [None]
  - DEATH [None]
  - SINUS BRADYCARDIA [None]
